FAERS Safety Report 6332567-0 (Version None)
Quarter: 2009Q3

REPORT INFORMATION
  Report Type: 
  Country: None (occurrence: None)
  Receive Date: 20090826
  Receipt Date: 20090810
  Transmission Date: 20100115
  Serious: Yes (Hospitalization)
  Sender: FDA-Public Use
  Company Number: 238929K09USA

PATIENT
  Age: 46 Year
  Sex: Male

DRUGS (11)
  1. REBIF [Suspect]
     Indication: MULTIPLE SCLEROSIS
     Dosage: 44 MCG, 3 IN 1 WEEKS, SUBCUTANEOUS
     Route: 058
     Dates: start: 20040429
  2. CALCIUM (CALCIUM-SANDOZ /00009901/) [Concomitant]
  3. CENTRUM SILVER (CENTRUM SILVER) [Concomitant]
  4. UTAC (ALL OTHER THERAPEUTIC PRODUTS) [Concomitant]
  5. FOLIC ACID [Concomitant]
  6. OXYBUTYNIN (OXYBUTYNIN /00538901/) [Concomitant]
  7. ZINC SULFATE (ZINC SULFATE) [Concomitant]
  8. BACLOFEN [Concomitant]
  9. 12(CYANOCOBALAMIN) [Concomitant]
  10. GABAPENTIN [Concomitant]
  11. AMANTADINE HCL [Concomitant]

REACTIONS (1)
  - CYSTITIS [None]
